FAERS Safety Report 5590823-8 (Version None)
Quarter: 2008Q1

REPORT INFORMATION
  Report Type: 
  Country: None (occurrence: None)
  Receive Date: 20080110
  Receipt Date: 20080102
  Transmission Date: 20080703
  Serious: Yes (Other)
  Sender: FDA-Public Use
  Company Number: 2008AL000042

PATIENT
  Age: 32 Month
  Sex: Male

DRUGS (4)
  1. PHENYTOIN [Suspect]
     Indication: CONVULSION
     Dates: end: 19990301
  2. PHENOBARBITAL 20MG/5ML ELIXIR [Suspect]
     Indication: CONVULSION
  3. ZONISAMIDE [Concomitant]
  4. PREDNISOLONE [Concomitant]

REACTIONS (9)
  - CONVULSION [None]
  - CYANOSIS [None]
  - DRUG HYPERSENSITIVITY [None]
  - HYPOGAMMAGLOBULINAEMIA [None]
  - LOSS OF CONSCIOUSNESS [None]
  - LYMPHOCYTE STIMULATION TEST POSITIVE [None]
  - PARTIAL SEIZURES [None]
  - STARING [None]
  - STATUS EPILEPTICUS [None]
